FAERS Safety Report 9194239 (Version 1)
Quarter: 2013Q1

REPORT INFORMATION
  Report Type: Spontaneous
  Country: CN (occurrence: CN)
  Receive Date: 20130327
  Receipt Date: 20130327
  Transmission Date: 20140127
  Serious: Yes (Other)
  Sender: FDA-Public Use
  Company Number: PHHY2013CN029769

PATIENT
  Sex: Male

DRUGS (5)
  1. TRIAMCINOLONE [Suspect]
     Indication: FUNGAL INFECTION
  2. TACROLIMUS [Concomitant]
     Dosage: 5 MG, PER DAY
  3. MYCOPHENOLATE MOFETIL [Concomitant]
     Dosage: 750 MG, PER DAY
  4. ANTITHYMOCYTE IMMUNOGLOBULIN [Concomitant]
     Dosage: 100 MG, PER DAY
  5. INSULIN [Concomitant]

REACTIONS (1)
  - Sensory loss [Unknown]
